FAERS Safety Report 5511476-0 (Version None)
Quarter: 2007Q4

REPORT INFORMATION
  Report Type: 
  Country: None (occurrence: None)
  Receive Date: 20071109
  Receipt Date: 20071107
  Transmission Date: 20080405
  Serious: Yes (Death, Life-Threatening)
  Sender: FDA-Public Use
  Company Number: JP-ASTRAZENECA-2007AP06514

PATIENT
  Age: 74 Year
  Sex: Male

DRUGS (2)
  1. CARBOCAINE AMPOULE [Suspect]
     Dosage: DOSE UNKNOWN
     Route: 065
     Dates: start: 20040401
  2. FENTANYL [Suspect]

REACTIONS (5)
  - BRADYCARDIA [None]
  - CARDIAC ARREST [None]
  - HYPOTENSION [None]
  - PNEUMONIA [None]
  - SHOCK [None]
